FAERS Safety Report 9015022 (Version 1)
Quarter: 2013Q1

REPORT INFORMATION
  Report Type: Spontaneous
  Country: US (occurrence: None)
  Receive Date: 20130109
  Receipt Date: 20130109
  Transmission Date: 20140127
  Serious: Yes (Life-Threatening, Hospitalization, Other)
  Sender: FDA-Public Use
  Company Number: None

PATIENT
  Age: 37 Year
  Sex: Male
  Weight: 83.92 kg

DRUGS (2)
  1. INCIVEK 375MG VERTEX [Suspect]
     Indication: HEPATITIS C
     Route: 048
     Dates: start: 20121001, end: 20121214
  2. RIBASPHERE [Suspect]
     Indication: HEPATITIS C
     Dosage: 600MG 2X DAILY PO
     Route: 048
     Dates: start: 20121001, end: 20121231

REACTIONS (14)
  - Muscle spasms [None]
  - Pruritus [None]
  - Vomiting [None]
  - Dehydration [None]
  - Hypophagia [None]
  - Incoherent [None]
  - Disturbance in attention [None]
  - Irritability [None]
  - Fatigue [None]
  - Feelings of worthlessness [None]
  - Arthralgia [None]
  - Back pain [None]
  - Feeling jittery [None]
  - Muscle spasms [None]
